FAERS Safety Report 6178924-7 (Version None)
Quarter: 2009Q2

REPORT INFORMATION
  Report Type: 
  Country: None (occurrence: None)
  Receive Date: 20090505
  Receipt Date: 20090424
  Transmission Date: 20091009
  Serious: Yes (Other)
  Sender: FDA-Public Use
  Company Number: US-BAYER-200915589NA

PATIENT
  Age: 47 Year
  Sex: Female

DRUGS (2)
  1. BETASERON [Suspect]
     Indication: RELAPSING-REMITTING MULTIPLE SCLEROSIS
     Dosage: TOTAL DAILY DOSE: 8 MIU
     Route: 058
     Dates: start: 20090109
  2. BETASERON [Suspect]
     Route: 058
     Dates: start: 20020319, end: 20080301

REACTIONS (9)
  - ABASIA [None]
  - BURNING SENSATION [None]
  - CHILLS [None]
  - DYSSTASIA [None]
  - INJECTION SITE REACTION [None]
  - MOBILITY DECREASED [None]
  - MULTIPLE SCLEROSIS [None]
  - TEMPERATURE INTOLERANCE [None]
  - URINARY INCONTINENCE [None]
